FAERS Safety Report 14874569 (Version 1)
Quarter: 2018Q2

REPORT INFORMATION
  Report Type: Spontaneous
  Country: US (occurrence: US)
  Receive Date: 20180510
  Receipt Date: 20180510
  Transmission Date: 20180711
  Serious: Yes (Other)
  Sender: FDA-Public Use
  Company Number: US-NAPPMUNDI-USA-2018-0143535

PATIENT
  Sex: Female

DRUGS (1)
  1. OXYCODONE HYDROCHLORIDE. [Suspect]
     Active Substance: OXYCODONE HYDROCHLORIDE
     Indication: PAIN
     Dosage: UNK, Q6H
     Route: 048

REACTIONS (5)
  - Spinal fracture [Unknown]
  - Drug dependence [Unknown]
  - Pain [Unknown]
  - Intentional overdose [Recovered/Resolved]
  - Fall [Recovered/Resolved]
